FAERS Safety Report 19608984 (Version 1)
Quarter: 2021Q3

REPORT INFORMATION
  Report Type: Report from Study
  Country: CN (occurrence: CN)
  Receive Date: 20210726
  Receipt Date: 20210726
  Transmission Date: 20211014
  Serious: Yes (Hospitalization, Other)
  Sender: FDA-Public Use
  Company Number: CN-ELI_LILLY_AND_COMPANY-CN202103011765

PATIENT
  Age: 67 Year
  Sex: Female
  Weight: 45 kg

DRUGS (2)
  1. HUMALOG [Suspect]
     Active Substance: INSULIN LISPRO
     Indication: TYPE 2 DIABETES MELLITUS
     Dosage: 18 U, BID (15?18 UNITS)
     Route: 058
     Dates: start: 2001
  2. HUMULIN NOS [Suspect]
     Active Substance: INSULIN HUMAN
     Indication: TYPE 2 DIABETES MELLITUS
     Dosage: 18 U, BID
     Route: 058
     Dates: start: 2006

REACTIONS (12)
  - Blood uric acid increased [Unknown]
  - Feeling hot [Unknown]
  - Hyperhidrosis [Unknown]
  - Blood glucose decreased [Unknown]
  - Pain [Unknown]
  - Deafness [Unknown]
  - Blood glucose increased [Unknown]
  - Swelling [Unknown]
  - Somnolence [Unknown]
  - Eye haemorrhage [Unknown]
  - Dizziness [Unknown]
  - Headache [Unknown]

NARRATIVE: CASE EVENT DATE: 20210312
